FAERS Safety Report 7094087-8 (Version None)
Quarter: 2010Q4

REPORT INFORMATION
  Report Type: 
  Country: None (occurrence: None)
  Receive Date: 20101109
  Receipt Date: 20101109
  Transmission Date: 20110411
  Serious: Yes (Hospitalization)
  Sender: FDA-Public Use
  Company Number: None

PATIENT
  Sex: Female
  Weight: 9.0719 kg

DRUGS (1)
  1. HYLAND'S TEETHING TABLETS HOMEOPATHIC HYLAND [Suspect]
     Indication: TEETHING
     Dosage: 2 TO 3 TABLETS 4 TIMES A DAY PO
     Route: 048
     Dates: start: 20100815, end: 20101105

REACTIONS (3)
  - CONVULSION [None]
  - PYREXIA [None]
  - RESPIRATORY FAILURE [None]
